FAERS Safety Report 5258620-0 (Version None)
Quarter: 2007Q1

REPORT INFORMATION
  Report Type: 
  Country: None (occurrence: None)
  Receive Date: 20070308
  Receipt Date: 20070301
  Transmission Date: 20070707
  Serious: Yes (Other)
  Sender: FDA-Public Use
  Company Number: FR-ROCHE-456271

PATIENT
  Age: 49 Year
  Sex: Male
  Weight: 37 kg

DRUGS (7)
  1. PEG-INTERFERON ALFA 2A (RO 25-8310) [Suspect]
     Route: 058
     Dates: start: 20050516, end: 20060415
  2. ATENOLOL [Concomitant]
  3. EUCALCIC [Concomitant]
  4. UN ALPHA [Concomitant]
  5. THIAMINE HCL [Concomitant]
  6. TRIATEC [Concomitant]
     Dates: start: 20050719
  7. TENORMIN [Concomitant]
     Dates: start: 20060111

REACTIONS (1)
  - OSTEOPOROTIC FRACTURE [None]
